FAERS Safety Report 5805743-0 (Version None)
Quarter: 2008Q3

REPORT INFORMATION
  Report Type: 
  Country: None (occurrence: None)
  Receive Date: 20080710
  Receipt Date: 20080703
  Transmission Date: 20090109
  Serious: Yes (Hospitalization)
  Sender: FDA-Public Use
  Company Number: RO-ASTRAZENECA-2008SE03322

PATIENT
  Age: 20578 Day
  Sex: Male

DRUGS (5)
  1. SEROQUEL XR [Suspect]
     Indication: SCHIZOAFFECTIVE DISORDER
     Dates: start: 20080507, end: 20080507
  2. SEROQUEL XR [Suspect]
     Dates: start: 20080508, end: 20080520
  3. SEROQUEL XR [Suspect]
     Dates: start: 20080521, end: 20080624
  4. STUDY PROCEDURE [Suspect]
     Indication: SCHIZOAFFECTIVE DISORDER
  5. ESCITALOPRAM [Concomitant]
     Indication: DEPRESSION
     Route: 048
     Dates: end: 20080624

REACTIONS (1)
  - PSYCHOTIC DISORDER [None]
